FAERS Safety Report 23890788 (Version 1)
Quarter: 2024Q2

REPORT INFORMATION
  Report Type: Spontaneous
  Country: US (occurrence: None)
  Receive Date: 20240523
  Receipt Date: 20240523
  Transmission Date: 20240715
  Serious: Yes (Hospitalization)
  Sender: FDA-Public Use
  Company Number: None

PATIENT
  Age: 19 Year
  Sex: Female
  Weight: 49.7 kg

DRUGS (1)
  1. LAMOTRIGINE [Suspect]
     Active Substance: LAMOTRIGINE
     Dosage: FREQUENCY : TWICE A DAY;?
     Route: 048
     Dates: start: 20240501, end: 20240514

REACTIONS (4)
  - Oropharyngeal discomfort [None]
  - Sensation of foreign body [None]
  - Drug hypersensitivity [None]
  - Stevens-Johnson syndrome [None]

NARRATIVE: CASE EVENT DATE: 20240517
